FAERS Safety Report 8467435-1 (Version None)
Quarter: 2012Q2

REPORT INFORMATION
  Report Type: 
  Country: None (occurrence: None)
  Receive Date: 20120626
  Receipt Date: 20120504
  Transmission Date: 20120825
  Serious: Yes (Other)
  Sender: FDA-Public Use
  Company Number: US-ASTRAZENECA-2011SE72558

PATIENT
  Age: 32 Year
  Sex: Female

DRUGS (3)
  1. CAPRELSA [Suspect]
     Indication: THYROID CANCER
     Route: 048
  2. ORAL CONTRACEPTIVE [Concomitant]
  3. CAPRELSA [Suspect]
     Indication: THYROID FUNCTION TEST ABNORMAL
     Route: 048

REACTIONS (3)
  - NEOPLASM PROGRESSION [None]
  - DRY SKIN [None]
  - HEADACHE [None]
